FAERS Safety Report 4810804-9 (Version None)
Quarter: 2005Q4

REPORT INFORMATION
  Report Type: 
  Country: None (occurrence: None)
  Receive Date: 20051024
  Receipt Date: 20051011
  Transmission Date: 20060501
  Serious: Yes (Hospitalization)
  Sender: FDA-Public Use
  Company Number: 2005127221

PATIENT
  Age: 68 Year
  Sex: Female
  Weight: 68.0396 kg

DRUGS (3)
  1. COOL MINT LISTERINE (MENTHOL, METHYL SALICYLATE, EUCALYPTOL, THYMOL) [Suspect]
     Indication: DENTAL DISORDER PROPHYLAXIS
     Dosage: A MOUTHFUL 1-2 X A DAY, ORAL
     Route: 048
  2. VITAMINS NOS (VITAMINS NOS) [Concomitant]
  3. METHADONE HCL [Concomitant]

REACTIONS (9)
  - ACCIDENTAL EXPOSURE [None]
  - BLOOD POTASSIUM DECREASED [None]
  - DISTURBANCE IN ATTENTION [None]
  - FATIGUE [None]
  - GINGIVAL BLEEDING [None]
  - GINGIVAL INFECTION [None]
  - MALAISE [None]
  - NAUSEA [None]
  - SYNCOPE [None]
